FAERS Safety Report 7810704-6 (Version None)
Quarter: 2011Q4

REPORT INFORMATION
  Report Type: 
  Country: None (occurrence: None)
  Receive Date: 20111013
  Receipt Date: 20111006
  Transmission Date: 20120403
  Serious: Yes (Death, Life-Threatening, Hospitalization)
  Sender: FDA-Public Use
  Company Number: BR-BRISTOL-MYERS SQUIBB COMPANY-14219273

PATIENT
  Age: 60 Year
  Sex: Male
  Weight: 55 kg

DRUGS (4)
  1. OXALIPLATIN [Suspect]
     Indication: COLORECTAL CANCER METASTATIC
     Dosage: FIRST INFUSION GIVEN ON 30APR08, RECENT INFUSION ON 29MAY08 (136MG).
     Route: 042
     Dates: start: 20080430
  2. FLUOROURACIL [Suspect]
     Indication: COLORECTAL CANCER METASTATIC
     Dosage: FIRST INFUSION GIVEN ON 30APR08,  RECENT INFUSION ON 30MAY08 (1600MG).
     Route: 042
     Dates: start: 20080430
  3. CETUXIMAB [Suspect]
     Indication: COLORECTAL CANCER METASTATIC
     Dosage: FIRST INFUSION GIVEN ON 30APR08, RECENT INFUSION ON 29MAY08 (400MG).
     Route: 042
     Dates: start: 20080430
  4. LEUCOVORIN CALCIUM [Concomitant]
     Indication: COLORECTAL CANCER METASTATIC
     Dosage: RECENT INFUSION TAKEN ON 29MAY08 (320MG),
     Route: 042
     Dates: start: 20080430

REACTIONS (3)
  - FEBRILE NEUTROPENIA [None]
  - INTESTINAL OBSTRUCTION [None]
  - SEPTIC SHOCK [None]
